FAERS Safety Report 5069081-9 (Version None)
Quarter: 2006Q3

REPORT INFORMATION
  Report Type: 
  Country: None (occurrence: None)
  Receive Date: 20060731
  Receipt Date: 20060717
  Transmission Date: 20061208
  Serious: Yes (Other)
  Sender: FDA-Public Use
  Company Number: 2006089657

PATIENT
  Age: 87 Year
  Sex: Male
  Weight: 75.2971 kg

DRUGS (5)
  1. LYRICA [Suspect]
     Indication: PAIN
     Dosage: 100 MG (50 MG, 2 IN 1 D)
     Dates: start: 20060613
  2. METHADONE HCL [Suspect]
     Indication: PAIN
     Dates: end: 20060101
  3. LIPITOR [Concomitant]
  4. FLOMAX [Concomitant]
  5. ASPIRIN [Concomitant]

REACTIONS (5)
  - CONDITION AGGRAVATED [None]
  - CONSTIPATION [None]
  - FEELING DRUNK [None]
  - MIDDLE INSOMNIA [None]
  - PAIN [None]
